FAERS Safety Report 9377293 (Version 1)
Quarter: 2013Q3

REPORT INFORMATION
  Report Type: Spontaneous
  Country: US (occurrence: US)
  Receive Date: 20130701
  Receipt Date: 20130701
  Transmission Date: 20140515
  Serious: Yes (Hospitalization)
  Sender: FDA-Public Use
  Company Number: US-BIOGENIDEC-2008BI020762

PATIENT
  Age: 54 Year
  Sex: Female
  Weight: 64 kg

DRUGS (7)
  1. TYSABRI [Suspect]
     Indication: MULTIPLE SCLEROSIS
     Route: 042
     Dates: start: 20071126, end: 200906
  2. TYSABRI [Suspect]
     Indication: MULTIPLE SCLEROSIS
     Route: 042
     Dates: start: 200909
  3. PERCOCET [Concomitant]
     Indication: FIBROMYALGIA
  4. VESICARE [Concomitant]
     Indication: URINARY TRACT INFECTION
  5. TRAZODONE [Concomitant]
     Indication: DEPRESSION
  6. ZOLOFT [Concomitant]
     Indication: DEPRESSION
  7. LIPITOR [Concomitant]
     Indication: BLOOD CHOLESTEROL INCREASED

REACTIONS (5)
  - Lower limb fracture [Recovered/Resolved]
  - Fall [Recovered/Resolved]
  - Solar dermatitis [Recovered/Resolved]
  - Balance disorder [Not Recovered/Not Resolved]
  - Gait disturbance [Not Recovered/Not Resolved]
